FAERS Safety Report 18753598 (Version 3)
Quarter: 2021Q3

REPORT INFORMATION
  Report Type: Spontaneous
  Country: US (occurrence: US)
  Receive Date: 20210118
  Receipt Date: 20210707
  Transmission Date: 20211014
  Serious: No
  Sender: FDA-Public Use
  Company Number: US-ALXN-A202100312

PATIENT
  Sex: Female

DRUGS (3)
  1. STRENSIQ [Suspect]
     Active Substance: ASFOTASE ALFA
     Indication: HYPOPHOSPHATASIA
     Dosage: UNK, UNK
     Route: 065
     Dates: start: 2016
  2. STRENSIQ [Suspect]
     Active Substance: ASFOTASE ALFA
     Dosage: 6 MG/KG, (0.75 ML,) UNK
     Route: 065
     Dates: start: 2020
  3. STRENSIQ [Suspect]
     Active Substance: ASFOTASE ALFA
     Dosage: 6 MG/KG, Q3W
     Route: 058

REACTIONS (11)
  - Skin lesion [Unknown]
  - X-ray limb abnormal [Unknown]
  - Tooth disorder [Not Recovered/Not Resolved]
  - Arthralgia [Not Recovered/Not Resolved]
  - Injection site pain [Not Recovered/Not Resolved]
  - Bone density decreased [Unknown]
  - Underdose [Recovered/Resolved]
  - Gait disturbance [Not Recovered/Not Resolved]
  - Pain [Unknown]
  - Pain in extremity [Not Recovered/Not Resolved]
  - Weight increased [Not Recovered/Not Resolved]
